FAERS Safety Report 10011715 (Version 3)
Quarter: 2014Q2

REPORT INFORMATION
  Report Type: Spontaneous
  Country: JP (occurrence: JP)
  Receive Date: 20140314
  Receipt Date: 20140523
  Transmission Date: 20141212
  Serious: Yes (Death, Hospitalization)
  Sender: FDA-Public Use
  Company Number: JP-PFIZER INC-2014074612

PATIENT
  Age: 91 Year
  Sex: Female
  Weight: 35 kg

DRUGS (4)
  1. ZOSYN [Suspect]
     Indication: PNEUMONIA BACTERIAL
     Dosage: 4.5 G, 2X/DAY
     Route: 041
     Dates: start: 20140220, end: 20140224
  2. TWINPAL [Concomitant]
     Dosage: 1000 ML, 1X/DAY
     Route: 041
     Dates: start: 20140221, end: 20140227
  3. VITAMEDIN CAPSULE [Concomitant]
     Dosage: 1 V/DAY
     Route: 041
     Dates: start: 20140220, end: 20140227
  4. GASTER [Concomitant]
     Dosage: 20 MG, 1X/DAY
     Route: 041
     Dates: start: 20140220, end: 20140227

REACTIONS (2)
  - Interstitial lung disease [Fatal]
  - Platelet count decreased [Not Recovered/Not Resolved]
